FAERS Safety Report 22909951 (Version 2)
Quarter: 2024Q3

REPORT INFORMATION
  Report Type: Report from Study
  Country: US (occurrence: US)
  Receive Date: 20230906
  Receipt Date: 20240819
  Transmission Date: 20241017
  Serious: No
  Sender: NOVARTIS
  Company Number: US-SANDOZ-SDZ2023US023234

PATIENT
  Sex: Male
  Weight: 86.18 kg

DRUGS (3)
  1. ENTRESTO [Suspect]
     Active Substance: SACUBITRIL\VALSARTAN
     Indication: Product used for unknown indication
     Dosage: ENTRESTO DOSAGE WAS REDUCED TO MIDDLE DOSE BUT BLOOD PRESSURE WAS STILL TOO LOW SO HE NOW TAKES THE
     Route: 065
     Dates: start: 2019
  2. ENTRESTO [Suspect]
     Active Substance: SACUBITRIL\VALSARTAN
     Dosage: 24/26 MG, BID
     Route: 065
  3. CARVEDILOL [Suspect]
     Active Substance: CARVEDILOL
     Indication: Product used for unknown indication
     Dosage: UNK
     Route: 065

REACTIONS (5)
  - Decreased appetite [Unknown]
  - Weight decreased [Unknown]
  - Dizziness [Unknown]
  - Product dose omission issue [Unknown]
  - Hypotension [Recovering/Resolving]
